FAERS Safety Report 9300114 (Version 1)
Quarter: 2013Q2

REPORT INFORMATION
  Report Type: Spontaneous
  Country: US (occurrence: US)
  Receive Date: 20130521
  Receipt Date: 20130521
  Transmission Date: 20140414
  Serious: No
  Sender: FDA-Public Use
  Company Number: US-MYLANLABS-2013S1004708

PATIENT
  Sex: Male

DRUGS (10)
  1. AMITRIPTYLINE [Suspect]
  2. CITALOPRAM [Suspect]
  3. SIMVASTATIN [Suspect]
  4. ZOLPIDEM [Suspect]
  5. FIORICET [Suspect]
  6. NIACIN [Suspect]
  7. HYDROCODONE [Suspect]
  8. AMBIEN [Suspect]
  9. PLAVIX [Suspect]
     Indication: ANTIPLATELET THERAPY
  10. PRILOSEC [Suspect]
     Indication: ABDOMINAL OPERATION

REACTIONS (1)
  - Asthenia [Not Recovered/Not Resolved]
